FAERS Safety Report 23521325 (Version 1)
Quarter: 2024Q1

REPORT INFORMATION
  Report Type: Spontaneous
  Country: JP (occurrence: JP)
  Receive Date: 20240214
  Receipt Date: 20240214
  Transmission Date: 20240409
  Serious: Yes (Hospitalization, Other)
  Sender: FDA-Public Use
  Company Number: JP-STRIDES ARCOLAB LIMITED-2024SP001657

PATIENT
  Age: 64 Year
  Sex: Female

DRUGS (16)
  1. ETOPOSIDE [Suspect]
     Active Substance: ETOPOSIDE
     Indication: Thymoma
     Dosage: UNK, 4 CYCLES
     Route: 065
  2. ETOPOSIDE [Suspect]
     Active Substance: ETOPOSIDE
     Indication: Acute myeloid leukaemia
     Dosage: UNK, RE-INDUCTION CHEMOTHERAPY
     Route: 065
  3. PACLITAXEL [Suspect]
     Active Substance: PACLITAXEL
     Indication: Thymoma
     Dosage: UNK, 4 CYCLES
     Route: 065
  4. CARBOPLATIN [Suspect]
     Active Substance: CARBOPLATIN
     Indication: Thymoma
     Dosage: UNK,  4 CYCLES
     Route: 065
  5. CARBOPLATIN [Suspect]
     Active Substance: CARBOPLATIN
     Dosage: UNK,  4 CYCLES (2ND LINE CHEMOTHERAPY)
     Route: 065
  6. AMRUBICIN [Suspect]
     Active Substance: AMRUBICIN
     Indication: Thymoma
     Dosage: UNK, (THIRD LINE THERAPY)
     Route: 065
  7. AMRUBICIN [Suspect]
     Active Substance: AMRUBICIN
     Dosage: UNK UNK, CYCLICAL (10 CYCLES)
     Route: 065
  8. CYTARABINE [Suspect]
     Active Substance: CYTARABINE
     Indication: Thymoma
     Dosage: UNK, INDUCTION THERAPY
     Route: 065
  9. CYTARABINE [Suspect]
     Active Substance: CYTARABINE
     Indication: Acute myeloid leukaemia
     Dosage: UNK, 3 CYCLES
     Route: 065
  10. CYTARABINE [Suspect]
     Active Substance: CYTARABINE
     Dosage: UNK (RE-INDUCTION)
     Route: 065
  11. AZACITIDINE [Suspect]
     Active Substance: AZACITIDINE
     Indication: Acute myeloid leukaemia
     Dosage: UNK,6 CYCLES
     Route: 065
  12. AZACITIDINE [Suspect]
     Active Substance: AZACITIDINE
     Dosage: UNK, 3 CYCLES
     Route: 065
  13. VENETOCLAX [Suspect]
     Active Substance: VENETOCLAX
     Indication: Acute myeloid leukaemia
     Dosage: UNK, 3 CYCLES
     Route: 065
  14. MITOXANTRONE [Suspect]
     Active Substance: MITOXANTRONE HYDROCHLORIDE
     Indication: Acute myeloid leukaemia
     Dosage: UNK
     Route: 065
  15. DAUNORUBICIN [Concomitant]
     Active Substance: DAUNORUBICIN
     Indication: Thymoma
     Dosage: UNK, INDUCTION THERAPY
     Route: 065
  16. IDARUBICIN [Concomitant]
     Active Substance: IDARUBICIN
     Indication: Acute myeloid leukaemia
     Dosage: UNK
     Route: 065

REACTIONS (2)
  - Acute myeloid leukaemia [Unknown]
  - Drug ineffective for unapproved indication [Unknown]
